FAERS Safety Report 5937829-4 (Version None)
Quarter: 2008Q4

REPORT INFORMATION
  Report Type: 
  Country: None (occurrence: None)
  Receive Date: 20081031
  Receipt Date: 20081027
  Transmission Date: 20090506
  Serious: Yes (Hospitalization, Other)
  Sender: FDA-Public Use
  Company Number: JP-SANOFI-SYNTHELABO-A01200807911

PATIENT
  Sex: Male
  Weight: 36 kg

DRUGS (8)
  1. HANGE-SHASHIN-TO [Concomitant]
     Dosage: UNK
     Dates: start: 20080423, end: 20080601
  2. LOPEMIN [Concomitant]
     Dosage: UNK
     Dates: start: 20080408, end: 20080601
  3. LAC-B [Concomitant]
     Dosage: UNK
     Dates: start: 20080408, end: 20080511
  4. OPIUM [Concomitant]
     Dosage: UNK
     Dates: start: 20080329, end: 20080601
  5. ISOVORIN [Suspect]
     Route: 041
     Dates: start: 20080513, end: 20080514
  6. FLUOROURACIL [Suspect]
     Route: 042
     Dates: start: 20080513, end: 20080514
  7. ELPLAT [Suspect]
     Indication: COLON CANCER METASTATIC
     Route: 041
     Dates: start: 20080513, end: 20080513
  8. AVASTIN [Suspect]
     Route: 041
     Dates: start: 20080513, end: 20080513

REACTIONS (1)
  - ENTEROCUTANEOUS FISTULA [None]
